FAERS Safety Report 23354205 (Version 3)
Quarter: 2024Q1

REPORT INFORMATION
  Report Type: Spontaneous
  Country: US (occurrence: US)
  Receive Date: 20240101
  Receipt Date: 20240205
  Transmission Date: 20240409
  Serious: Yes (Hospitalization)
  Sender: FDA-Public Use
  Company Number: US-BIOVITRUM-2023-US-021528

PATIENT
  Age: 0 Year
  Sex: Female

DRUGS (2)
  1. SYNAGIS [Suspect]
     Active Substance: PALIVIZUMAB
     Indication: Premature baby
     Dosage: ONCE PER MONTH?100MG/ML
     Route: 030
     Dates: start: 20231107
  2. SYNAGIS [Suspect]
     Active Substance: PALIVIZUMAB
     Dosage: ONCE PER MONTH
     Route: 030
     Dates: start: 20231212

REACTIONS (1)
  - Respiratory syncytial virus infection [Recovering/Resolving]

NARRATIVE: CASE EVENT DATE: 20231221
